FAERS Safety Report 6382154-3 (Version None)
Quarter: 2009Q3

REPORT INFORMATION
  Report Type: 
  Country: None (occurrence: None)
  Receive Date: 20090930
  Receipt Date: 20090917
  Transmission Date: 20100115
  Serious: Yes (Other)
  Sender: FDA-Public Use
  Company Number: PHEH2009US11124

PATIENT
  Sex: Female

DRUGS (1)
  1. GLEEVEC [Suspect]
     Route: 048

REACTIONS (4)
  - DENTAL IMPLANTATION [None]
  - ENDODONTIC PROCEDURE [None]
  - GINGIVAL PAIN [None]
  - RENAL HAEMORRHAGE [None]
